FAERS Safety Report 20865161 (Version 1)
Quarter: 2022Q2

REPORT INFORMATION
  Report Type: Spontaneous
  Country: DE (occurrence: DE)
  Receive Date: 20220524
  Receipt Date: 20220524
  Transmission Date: 20220720
  Serious: Yes (Other)
  Sender: FDA-Public Use
  Company Number: DE-UCBSA-2022024935

PATIENT
  Age: 25 Year
  Sex: Male

DRUGS (8)
  1. LEVETIRACETAM [Suspect]
     Active Substance: LEVETIRACETAM
     Indication: Product used for unknown indication
     Dosage: 5000 MILLIGRAM, ONCE A DAY (2500 MILLIGRAM, 2X/DAY (BID))
  2. LEVETIRACETAM [Suspect]
     Active Substance: LEVETIRACETAM
     Dosage: 4000 MILLIGRAM, ONCE A DAY (2000 MILLIGRAM, 2X/DAY (BID))
     Route: 065
  3. LEVETIRACETAM [Suspect]
     Active Substance: LEVETIRACETAM
     Dosage: 18000 MILLIGRAM, ONCE A DAY (9000 MILLIGRAM, 2X/DAY (BID))
     Route: 065
  4. LEVETIRACETAM [Suspect]
     Active Substance: LEVETIRACETAM
     Dosage: 500 MILLIGRAM, ONCE A DAY (250 MILLIGRAM, 2X/DAY (BID))
     Route: 065
  5. BRIVARACETAM [Suspect]
     Active Substance: BRIVARACETAM
     Indication: Product used for unknown indication
     Dosage: 300 MILLIGRAM
     Route: 065
  6. BRIVARACETAM [Suspect]
     Active Substance: BRIVARACETAM
     Dosage: 400 MILLIGRAM, DAILY
     Route: 065
  7. VIMPAT [Suspect]
     Active Substance: LACOSAMIDE
     Indication: Product used for unknown indication
     Dosage: 400 MILLIGRAM, ONCE A DAY (200 MILLIGRAM, 2X/DAY (BID))
     Route: 065
  8. VIMPAT [Suspect]
     Active Substance: LACOSAMIDE
     Dosage: 200 MILLIGRAM, ONCE A DAY (100 MILLIGRAM, 2X/DAY (BID))
     Route: 065

REACTIONS (10)
  - Epilepsy surgery [Unknown]
  - Seizure [Unknown]
  - Fatigue [Unknown]
  - Drug resistance [Unknown]
  - Therapeutic product effect incomplete [Unknown]
  - Impulsive behaviour [Unknown]
  - Somnolence [Unknown]
  - Overdose [Unknown]
  - Product dose omission in error [Unknown]
  - Intentional product use issue [Unknown]
